FAERS Safety Report 16890007 (Version 4)
Quarter: 2020Q1

REPORT INFORMATION
  Report Type: Spontaneous
  Country: US (occurrence: US)
  Receive Date: 20191007
  Receipt Date: 20200331
  Transmission Date: 20200409
  Serious: Yes (Hospitalization, Other)
  Sender: FDA-Public Use
  Company Number: US-PFIZER INC-2019426140

PATIENT
  Age: 58 Year
  Sex: Female

DRUGS (1)
  1. XELJANZ XR [Suspect]
     Active Substance: TOFACITINIB CITRATE
     Indication: ARTHRITIS
     Dosage: 11 MG, UNK
     Dates: start: 201909, end: 20200228

REACTIONS (9)
  - Haemorrhage [Unknown]
  - Colitis [Unknown]
  - Blood potassium decreased [Unknown]
  - Condition aggravated [Recovered/Resolved]
  - Food poisoning [Unknown]
  - Off label use [Unknown]
  - Product dose omission [Unknown]
  - Hypoglycaemia [Unknown]
  - Product use in unapproved indication [Unknown]

NARRATIVE: CASE EVENT DATE: 201909
